FAERS Safety Report 23516849 (Version 1)
Quarter: 2024Q1

REPORT INFORMATION
  Report Type: Spontaneous
  Country: US (occurrence: None)
  Receive Date: 20240212
  Receipt Date: 20240212
  Transmission Date: 20240410
  Serious: Yes (Other)
  Sender: FDA-Public Use
  Company Number: None

PATIENT
  Age: 76 Year
  Sex: Female
  Weight: 64.86 kg

DRUGS (11)
  1. RECLAST [Suspect]
     Active Substance: ZOLEDRONIC ACID
     Dosage: OTHER QUANTITY : OTHER;?OTHER FREQUENCY : OTHER;?
     Route: 042
     Dates: start: 20240131, end: 20240131
  2. ATORVASTATIN [Concomitant]
     Active Substance: ATORVASTATIN
  3. OMEPRAZOLE [Concomitant]
     Active Substance: OMEPRAZOLE
  4. ATENOLOL [Concomitant]
     Active Substance: ATENOLOL
  5. LISINOPRIL [Concomitant]
     Active Substance: LISINOPRIL
  6. HYDROCHLOROTHIAZIDE [Concomitant]
     Active Substance: HYDROCHLOROTHIAZIDE
  7. SERTRALINE [Concomitant]
     Active Substance: SERTRALINE HYDROCHLORIDE
  8. METFORMIN [Concomitant]
     Active Substance: METFORMIN HYDROCHLORIDE
  9. AZELASTINE [Concomitant]
     Active Substance: AZELASTINE\AZELASTINE HYDROCHLORIDE
  10. IPRATROPIUM [Concomitant]
     Active Substance: IPRATROPIUM
  11. FLUTICASONE [Concomitant]
     Active Substance: FLUTICASONE

REACTIONS (2)
  - Raynaud^s phenomenon [None]
  - Infusion related reaction [None]

NARRATIVE: CASE EVENT DATE: 20240131
